FAERS Safety Report 11844101 (Version 1)
Quarter: 2015Q4

REPORT INFORMATION
  Report Type: Spontaneous
  Country: CA (occurrence: CA)
  Receive Date: 20151217
  Receipt Date: 20151217
  Transmission Date: 20160305
  Serious: Yes (Other)
  Sender: FDA-Public Use
  Company Number: CA-TEVA-619183ACC

PATIENT
  Age: 79 Year
  Sex: Female
  Weight: 76 kg

DRUGS (4)
  1. LOZIDE [Concomitant]
     Active Substance: INDAPAMIDE
  2. LOSARTAN. [Suspect]
     Active Substance: LOSARTAN
     Indication: HYPERTENSION
     Dosage: 50 MILLIGRAM DAILY;
     Route: 048
  3. CELEBREX [Concomitant]
     Active Substance: CELECOXIB
  4. PARIET [Concomitant]
     Active Substance: RABEPRAZOLE SODIUM

REACTIONS (2)
  - Cough [Recovered/Resolved]
  - Choking [Recovered/Resolved]
